FAERS Safety Report 14967152 (Version 1)
Quarter: 2018Q2

REPORT INFORMATION
  Report Type: Spontaneous
  Country: US (occurrence: US)
  Receive Date: 20180511
  Receipt Date: 20180511
  Transmission Date: 20180711
  Serious: No
  Sender: FDA-Public Use
  Company Number: None

PATIENT
  Age: 66 Year
  Sex: Male

DRUGS (1)
  1. IMATINIB MES TAB 400MG [Suspect]
     Active Substance: IMATINIB MESYLATE

REACTIONS (4)
  - Fluid retention [None]
  - Red blood cell count decreased [None]
  - Blood potassium decreased [None]
  - Erythema [None]

NARRATIVE: CASE EVENT DATE: 20180511
